FAERS Safety Report 14922828 (Version 1)
Quarter: 2018Q2

REPORT INFORMATION
  Report Type: Spontaneous
  Country: FR (occurrence: FR)
  Receive Date: 20180522
  Receipt Date: 20180522
  Transmission Date: 20180711
  Serious: Yes (Other)
  Sender: FDA-Public Use
  Company Number: FR-MERCK KGAA-2048221

PATIENT
  Age: 67 Year
  Sex: Female

DRUGS (1)
  1. NOVOTHYROX [Suspect]
     Active Substance: LEVOTHYROXINE SODIUM
     Indication: HYPOTHYROIDISM
     Dates: end: 201710

REACTIONS (55)
  - Hyperthyroidism [None]
  - Musculoskeletal pain [None]
  - Balance disorder [None]
  - Gastrointestinal disorder [None]
  - Abdominal distension [None]
  - Abdominal pain upper [None]
  - Alopecia [None]
  - Insomnia [None]
  - Temperature intolerance [None]
  - Blood 25-hydroxycholecalciferol increased [None]
  - Arthralgia [None]
  - Pain in extremity [None]
  - Dry mouth [None]
  - Misophonia [None]
  - Hypersomnia [None]
  - Mental impairment [None]
  - Disturbance in attention [None]
  - Decreased interest [None]
  - Social avoidant behaviour [None]
  - Abdominal rigidity [None]
  - Irritability [None]
  - Mood swings [None]
  - Hypothyroidism [None]
  - Diarrhoea [None]
  - Paraesthesia [None]
  - Loss of personal independence in daily activities [None]
  - Myalgia [None]
  - Aggression [None]
  - Gastritis [None]
  - Anxiety [None]
  - Blood pressure increased [None]
  - Hyperhidrosis [None]
  - Weight decreased [None]
  - Tachycardia [None]
  - Asthenia [None]
  - Anger [None]
  - Decreased appetite [None]
  - Fatigue [None]
  - Suicidal ideation [None]
  - Gastrointestinal pain [None]
  - Abdominal pain lower [None]
  - Back pain [None]
  - Memory impairment [None]
  - Feeling abnormal [None]
  - Decreased activity [None]
  - Oropharyngeal pain [None]
  - Malaise [None]
  - Bone pain [None]
  - Irritable bowel syndrome [None]
  - Nausea [None]
  - Depression [None]
  - Anxiety [None]
  - Headache [None]
  - Hypersensitivity [None]
  - High density lipoprotein increased [None]

NARRATIVE: CASE EVENT DATE: 2017
